FAERS Safety Report 8349066-7 (Version None)
Quarter: 2012Q2

REPORT INFORMATION
  Report Type: 
  Country: None (occurrence: None)
  Receive Date: 20120508
  Receipt Date: 20120425
  Transmission Date: 20120825
  Serious: Yes (Hospitalization, Other)
  Sender: FDA-Public Use
  Company Number: 2012000048

PATIENT
  Age: 58 Year
  Sex: Female

DRUGS (2)
  1. CARDIOMAGNYL (ACETYLSALICYLIC ACID) [Concomitant]
  2. ACEON [Suspect]
     Indication: HYPERTENSION
     Dosage: 2.5 MG, BID, ORAL
     Route: 048
     Dates: start: 20100301

REACTIONS (3)
  - PRODUCT QUALITY ISSUE [None]
  - DRUG INEFFECTIVE [None]
  - HYPERTENSION [None]
